FAERS Safety Report 6030176-4 (Version None)
Quarter: 2009Q1

REPORT INFORMATION
  Report Type: 
  Country: None (occurrence: None)
  Receive Date: 20090105
  Receipt Date: 20090105
  Transmission Date: 20090719
  Serious: No
  Sender: FDA-Public Use
  Company Number: None

PATIENT
  Age: 88 Year
  Sex: Female
  Weight: 50.3493 kg

DRUGS (2)
  1. PRIMAXIN [Suspect]
     Indication: ESCHERICHIA URINARY TRACT INFECTION
     Dosage: 500MG Q 8 HRS IV DRIP
     Route: 041
  2. PRIMAXIN [Suspect]
     Dosage: 250MG ONCE IV DRIP
     Route: 041

REACTIONS (4)
  - CONFUSIONAL STATE [None]
  - HALLUCINATION [None]
  - RASH [None]
  - TREMOR [None]
